FAERS Safety Report 7818411-0 (Version None)
Quarter: 2011Q4

REPORT INFORMATION
  Report Type: 
  Country: None (occurrence: None)
  Receive Date: 20111017
  Receipt Date: 20111010
  Transmission Date: 20120403
  Serious: Yes (Hospitalization)
  Sender: FDA-Public Use
  Company Number: US-BAYER-2011-097608

PATIENT
  Age: 84 Year
  Sex: Female

DRUGS (15)
  1. NEXIUM [Concomitant]
  2. HYDROCODONE BITARTRATE [Concomitant]
  3. AVELOX [Suspect]
     Indication: CHRONIC OBSTRUCTIVE PULMONARY DISEASE
     Dosage: 400 MG, QD
     Dates: start: 20110916
  4. HYDROCHLOROTHIAZIDE [Concomitant]
  5. LEVOTHYROXINE SODIUM [Concomitant]
  6. HYDROXYZINE [Concomitant]
  7. CARTIA XT [Concomitant]
  8. TRIAMCINOLONE [Concomitant]
  9. SEROQUEL [Concomitant]
  10. ALPHAGAN [Concomitant]
  11. ZONALON [Concomitant]
  12. PREDNISONE [Concomitant]
  13. AMITIZA [Concomitant]
  14. FLOVENT [Concomitant]
  15. ALBUTEROL [Concomitant]

REACTIONS (1)
  - PARAESTHESIA [None]
